FAERS Safety Report 8431426-7 (Version None)
Quarter: 2012Q2

REPORT INFORMATION
  Report Type: 
  Country: None (occurrence: None)
  Receive Date: 20120604
  Receipt Date: 20110716
  Transmission Date: 20120825
  Serious: Yes (Hospitalization)
  Sender: FDA-Public Use
  Company Number: 2011AP001533

PATIENT
  Age: 50 Year
  Sex: Male

DRUGS (2)
  1. KETOCONAZOLE [Suspect]
     Indication: HYPERCORTICOIDISM
     Dosage: 200 MG;
  2. KETOCONAZOLE [Suspect]
     Indication: OFF LABEL USE
     Dosage: 200 MG;

REACTIONS (5)
  - OFF LABEL USE [None]
  - HYPOGLYCAEMIA [None]
  - HYPERKALAEMIA [None]
  - HYPOTENSION [None]
  - ADRENOCORTICAL INSUFFICIENCY ACUTE [None]
